FAERS Safety Report 22241567 (Version 13)
Quarter: 2024Q4

REPORT INFORMATION
  Report Type: Report from Study
  Country: AR (occurrence: AR)
  Receive Date: 20230421
  Receipt Date: 20241010
  Transmission Date: 20250114
  Serious: Yes (Life-Threatening, Other)
  Sender: NOVARTIS
  Company Number: AR-002147023-NVSC2022AR103606

PATIENT
  Sex: Female

DRUGS (10)
  1. KISQALI [Suspect]
     Active Substance: RIBOCICLIB
     Indication: Breast cancer metastatic
     Dosage: 600 MG, QD
     Route: 048
     Dates: start: 20220419, end: 202210
  2. KISQALI [Suspect]
     Active Substance: RIBOCICLIB
     Dosage: 600 MG, QD (ONCE DAILY)
     Route: 065
  3. KISQALI [Suspect]
     Active Substance: RIBOCICLIB
     Dosage: 600 MG/KG, QD
     Route: 065
  4. KISQALI [Suspect]
     Active Substance: RIBOCICLIB
     Dosage: UNK, QD
     Route: 048
  5. KISQALI [Suspect]
     Active Substance: RIBOCICLIB
     Dosage: 300 MG, QD
     Route: 048
  6. KISQALI [Suspect]
     Active Substance: RIBOCICLIB
     Dosage: 600 MG, QD
     Route: 048
  7. KISQALI [Suspect]
     Active Substance: RIBOCICLIB
     Dosage: 200 MG, QD
     Route: 048
  8. FEMARA [Suspect]
     Active Substance: LETROZOLE
     Indication: Breast cancer metastatic
     Dosage: 2.5 MG, QD
     Route: 048
     Dates: start: 20220419
  9. FEMARA [Suspect]
     Active Substance: LETROZOLE
     Dosage: UNK, QD (ONCE DAILY)
     Route: 065
  10. FEMARA [Suspect]
     Active Substance: LETROZOLE
     Dosage: 2.5 MG/KG, QD
     Route: 065

REACTIONS (34)
  - Feeling abnormal [Unknown]
  - Metastases to spine [Unknown]
  - Metastases to bone [Unknown]
  - Metastases to lung [Unknown]
  - Metastases to central nervous system [Unknown]
  - Breast cancer [Unknown]
  - Metastasis [Unknown]
  - Malignant neoplasm progression [Unknown]
  - Dizziness [Unknown]
  - Nervousness [Unknown]
  - Feeling of despair [Unknown]
  - Anxiety [Unknown]
  - Depressed mood [Unknown]
  - Somatic symptom disorder [Unknown]
  - Depression [Unknown]
  - Fear [Unknown]
  - Malaise [Unknown]
  - Drug intolerance [Unknown]
  - Wrist fracture [Recovering/Resolving]
  - Osteoporosis [Unknown]
  - Fall [Unknown]
  - Amnesia [Unknown]
  - Stress [Unknown]
  - Disease recurrence [Recovering/Resolving]
  - Discomfort [Unknown]
  - Fatigue [Unknown]
  - Asthenia [Unknown]
  - Dyspnoea [Unknown]
  - Pain [Unknown]
  - Upper limb fracture [Unknown]
  - Pain in extremity [Unknown]
  - Influenza [Unknown]
  - Arthralgia [Unknown]
  - Memory impairment [Unknown]

NARRATIVE: CASE EVENT DATE: 20220101
